FAERS Safety Report 20071178 (Version 1)
Quarter: 2021Q4

REPORT INFORMATION
  Report Type: Report from Study
  Country: DE (occurrence: DE)
  Receive Date: 20211115
  Receipt Date: 20211115
  Transmission Date: 20220303
  Serious: Yes (Hospitalization)
  Sender: FDA-Public Use
  Company Number: DE-ABBVIE-21K-062-4160261-00

PATIENT
  Age: 40 Year
  Sex: Female
  Weight: 60 kg

DRUGS (1)
  1. HUMIRA [Suspect]
     Active Substance: ADALIMUMAB
     Indication: Crohn^s disease
     Route: 058
     Dates: start: 20110201, end: 201810

REACTIONS (5)
  - Adhesion [Recovered/Resolved]
  - Incorrect dose administered [Not Recovered/Not Resolved]
  - Postoperative wound complication [Not Recovered/Not Resolved]
  - Enterostomy [Not Recovered/Not Resolved]
  - Drug specific antibody [Not Recovered/Not Resolved]

NARRATIVE: CASE EVENT DATE: 20181101
